FAERS Safety Report 13803215 (Version 3)
Quarter: 2018Q1

REPORT INFORMATION
  Report Type: Report from Study
  Country: US (occurrence: US)
  Receive Date: 20170728
  Receipt Date: 20180201
  Transmission Date: 20180508
  Serious: Yes (Other)
  Sender: FDA-Public Use
  Company Number: US-AMGEN-USASL2017092556

PATIENT
  Age: 61 Year
  Sex: Female
  Weight: 49.43 kg

DRUGS (1)
  1. PROLIA [Suspect]
     Active Substance: DENOSUMAB
     Indication: OSTEOPOROSIS
     Dosage: 60 MG, Q6MO
     Route: 058
     Dates: start: 20150819, end: 20150819

REACTIONS (4)
  - Myalgia [Unknown]
  - Bone pain [Unknown]
  - Malaise [Recovered/Resolved]
  - Drug intolerance [Unknown]
